FAERS Safety Report 8369722-4 (Version None)
Quarter: 2012Q2

REPORT INFORMATION
  Report Type: 
  Country: None (occurrence: None)
  Receive Date: 20120518
  Receipt Date: 20120511
  Transmission Date: 20120825
  Serious: Yes (Other)
  Sender: FDA-Public Use
  Company Number: PHHY2011CA55707

PATIENT
  Sex: Female

DRUGS (3)
  1. GILENYA [Suspect]
     Indication: RELAPSING-REMITTING MULTIPLE SCLEROSIS
     Dosage: 0.5 MG, QD
     Route: 048
     Dates: start: 20110620
  2. CYMBALTA [Concomitant]
  3. MODAFINIL [Concomitant]

REACTIONS (8)
  - CONJUNCTIVAL HYPERAEMIA [None]
  - PSORIASIS [None]
  - FEELING ABNORMAL [None]
  - ASTHENIA [None]
  - DRY EYE [None]
  - EYE HAEMORRHAGE [None]
  - EYE INFECTION [None]
  - NAUSEA [None]
